FAERS Safety Report 12373233 (Version 1)
Quarter: 2016Q2

REPORT INFORMATION
  Report Type: Spontaneous
  Country: KR (occurrence: KR)
  Receive Date: 20160516
  Receipt Date: 20160516
  Transmission Date: 20160815
  Serious: Yes (Other)
  Sender: FDA-Public Use
  Company Number: KR-VERNALIS THERAPEUTICS, INC.-2016VRN00034

PATIENT
  Age: 33 Year
  Sex: Female

DRUGS (2)
  1. AMOXICILLIN. [Suspect]
     Active Substance: AMOXICILLIN
     Route: 065
  2. ACETAMINOPHEN. [Suspect]
     Active Substance: ACETAMINOPHEN
     Route: 065

REACTIONS (4)
  - Sebaceous gland disorder [Recovering/Resolving]
  - Blindness [Not Recovered/Not Resolved]
  - Toxic epidermal necrolysis [Recovered/Resolved]
  - Corneal perforation [Not Recovered/Not Resolved]

NARRATIVE: CASE EVENT DATE: 200706
